FAERS Safety Report 5092996-2 (Version None)
Quarter: 2006Q3

REPORT INFORMATION
  Report Type: 
  Country: None (occurrence: None)
  Receive Date: 20060830
  Receipt Date: 20060824
  Transmission Date: 20061208
  Serious: Yes (Disabling)
  Sender: FDA-Public Use
  Company Number: JP-JPN-A200603309

PATIENT
  Age: 57 Year
  Sex: Male

DRUGS (7)
  1. PAXIL [Suspect]
     Indication: DEPRESSION
     Dosage: 40MG PER DAY
     Route: 048
     Dates: start: 20060306, end: 20060614
  2. DOGMATYL [Concomitant]
     Route: 065
  3. UBRETID [Concomitant]
     Route: 048
  4. DALMATE [Concomitant]
     Route: 048
  5. TASMOLIN [Concomitant]
     Route: 048
  6. RESLIN [Concomitant]
     Route: 048
  7. ROHYPNOL [Concomitant]
     Route: 048

REACTIONS (1)
  - DEPRESSED LEVEL OF CONSCIOUSNESS [None]
